FAERS Safety Report 7127596-3 (Version None)
Quarter: 2010Q4

REPORT INFORMATION
  Report Type: 
  Country: None (occurrence: None)
  Receive Date: 20101129
  Receipt Date: 20101111
  Transmission Date: 20110411
  Serious: Yes (Other)
  Sender: FDA-Public Use
  Company Number: DE-AMGEN-DEUSP2010004853

PATIENT

DRUGS (3)
  1. ETANERCEPT [Suspect]
     Indication: PSORIATIC ARTHROPATHY
     Dosage: 50 MG, WEEKLY
     Route: 058
     Dates: start: 20090914, end: 20101020
  2. ETANERCEPT [Suspect]
     Indication: NAIL PSORIASIS
  3. ETANERCEPT [Suspect]
     Indication: PSORIASIS

REACTIONS (1)
  - LEUKOCYTOSIS [None]
